FAERS Safety Report 25638018 (Version 1)
Quarter: 2025Q3

REPORT INFORMATION
  Report Type: Spontaneous
  Country: US (occurrence: US)
  Receive Date: 20250804
  Receipt Date: 20250804
  Transmission Date: 20251021
  Serious: Yes (Other)
  Sender: MYLAN
  Company Number: US-MYLANLABS-2025M1064301

PATIENT
  Age: 79 Year
  Sex: Female

DRUGS (12)
  1. PREDNISONE [Suspect]
     Active Substance: PREDNISONE
     Indication: Drug eruption
  2. PREDNISONE [Suspect]
     Active Substance: PREDNISONE
     Route: 065
  3. PREDNISONE [Suspect]
     Active Substance: PREDNISONE
     Route: 065
  4. PREDNISONE [Suspect]
     Active Substance: PREDNISONE
  5. DUPILUMAB [Suspect]
     Active Substance: DUPILUMAB
     Indication: Drug eruption
  6. DUPILUMAB [Suspect]
     Active Substance: DUPILUMAB
     Route: 065
  7. DUPILUMAB [Suspect]
     Active Substance: DUPILUMAB
     Route: 065
  8. DUPILUMAB [Suspect]
     Active Substance: DUPILUMAB
  9. APREMILAST [Suspect]
     Active Substance: APREMILAST
     Indication: Drug eruption
     Dosage: 30 MILLIGRAM, BID
  10. APREMILAST [Suspect]
     Active Substance: APREMILAST
     Dosage: 30 MILLIGRAM, BID
     Route: 065
  11. APREMILAST [Suspect]
     Active Substance: APREMILAST
     Dosage: 30 MILLIGRAM, BID
     Route: 065
  12. APREMILAST [Suspect]
     Active Substance: APREMILAST
     Dosage: 30 MILLIGRAM, BID

REACTIONS (1)
  - Drug ineffective [Unknown]
